FAERS Safety Report 11434090 (Version 2)
Quarter: 2015Q3

REPORT INFORMATION
  Report Type: Report from Study
  Country: CA (occurrence: CA)
  Receive Date: 20150831
  Receipt Date: 20150909
  Transmission Date: 20151125
  Serious: Yes (Hospitalization, Other)
  Sender: FDA-Public Use
  Company Number: CA-BIOGENIDEC-2015BI113327

PATIENT
  Age: 36 Year
  Sex: Female

DRUGS (2)
  1. PIPERACILLIN [Concomitant]
     Active Substance: PIPERACILLIN
     Route: 042
  2. TYSABRI [Suspect]
     Active Substance: NATALIZUMAB
     Indication: RELAPSING-REMITTING MULTIPLE SCLEROSIS
     Route: 042
     Dates: start: 20150715

REACTIONS (5)
  - Infection [Unknown]
  - Abscess rupture [Recovered/Resolved]
  - White blood cell disorder [Unknown]
  - Anal fistula [Unknown]
  - Proctalgia [Unknown]

NARRATIVE: CASE EVENT DATE: 201508
